FAERS Safety Report 10381891 (Version 3)
Quarter: 2014Q4

REPORT INFORMATION
  Report Type: Report from Study
  Country: JP (occurrence: JP)
  Receive Date: 20140813
  Receipt Date: 20141118
  Transmission Date: 20150528
  Serious: Yes (Hospitalization, Other)
  Sender: FDA-Public Use
  Company Number: JP-GLAXOSMITHKLINE-B1023054A

PATIENT
  Age: 7 Month
  Sex: Female
  Weight: 6.5 kg

DRUGS (11)
  1. ATOVAQUONE. [Suspect]
     Active Substance: ATOVAQUONE
     Indication: ANTIFUNGAL PROPHYLAXIS
     Route: 048
     Dates: start: 20121226, end: 20130719
  2. IDAMYCIN [Suspect]
     Active Substance: IDARUBICIN HYDROCHLORIDE
     Dosage: 2 MG, QD
     Route: 041
     Dates: start: 20130319, end: 20130319
  3. ETOPOSIDE. [Suspect]
     Active Substance: ETOPOSIDE
     Dosage: 23 MG, QD
     Route: 041
     Dates: start: 20121031
  4. CYTARABINE. [Suspect]
     Active Substance: CYTARABINE
     Dosage: 430 MG, TID
     Route: 041
     Dates: start: 20130204, end: 20130209
  5. CYTARABINE. [Suspect]
     Active Substance: CYTARABINE
     Dosage: 600 MG, TID
     Route: 041
     Dates: start: 20130319, end: 20130322
  6. CYTARABINE. [Suspect]
     Active Substance: CYTARABINE
     Dosage: 660 MG, TID
     Route: 041
     Dates: start: 20121226, end: 20121229
  7. NOVANTRONE [Suspect]
     Active Substance: MITOXANTRONE HYDROCHLORIDE
     Dosage: 0.9 MG, QD
     Route: 041
     Dates: start: 20130425, end: 20130425
  8. METHOTREXATE [Concomitant]
     Active Substance: METHOTREXATE
     Indication: ACUTE MYELOID LEUKAEMIA
     Dosage: 6 MG, QD
     Dates: start: 20121105
  9. IDAMYCIN [Suspect]
     Active Substance: IDARUBICIN HYDROCHLORIDE
     Dosage: 2.2 MG, QD
     Route: 041
     Dates: start: 20121226, end: 20121226
  10. CYTARABINE. [Suspect]
     Active Substance: CYTARABINE
     Dosage: 270 MG, BID
     Route: 041
     Dates: start: 20130423, end: 20130427
  11. NOVANTRONE [Suspect]
     Active Substance: MITOXANTRONE HYDROCHLORIDE
     Dosage: 1.1 MG, QD
     Route: 041
     Dates: start: 20130204, end: 20130206

REACTIONS (9)
  - Hypophosphataemia [Recovered/Resolved]
  - Prothrombin time prolonged [Recovered/Resolved]
  - Diarrhoea [Recovered/Resolved]
  - Bone marrow failure [Recovered/Resolved]
  - Hypokalaemia [Recovered/Resolved]
  - Prothrombin time prolonged [Recovered/Resolved]
  - Diarrhoea [Recovered/Resolved]
  - Hypocalcaemia [Recovered/Resolved]
  - Prothrombin time prolonged [Recovered/Resolved]

NARRATIVE: CASE EVENT DATE: 20121231
